FAERS Safety Report 11712359 (Version 1)
Quarter: 2015Q4

REPORT INFORMATION
  Report Type: Spontaneous
  Country: US (occurrence: US)
  Receive Date: 20151104
  Receipt Date: 20151104
  Transmission Date: 20160304
  Serious: No
  Sender: FDA-Public Use
  Company Number: US-ELI_LILLY_AND_COMPANY-US201106000859

PATIENT
  Sex: Female

DRUGS (2)
  1. FORTEO [Suspect]
     Active Substance: TERIPARATIDE
     Dosage: 20 UG, QD
     Route: 065
     Dates: end: 20110614
  2. FORTEO [Suspect]
     Active Substance: TERIPARATIDE
     Indication: OSTEOPOROSIS
     Dosage: 20 UG, QD
     Route: 065
     Dates: start: 20110421

REACTIONS (9)
  - Rash [Unknown]
  - Drug dose omission [Unknown]
  - Localised infection [Unknown]
  - Local swelling [Unknown]
  - Accidental overdose [Unknown]
  - Erythema [Unknown]
  - Contusion [Unknown]
  - Injection site bruising [Recovering/Resolving]
  - Pruritus [Unknown]
